FAERS Safety Report 4541730-0 (Version None)
Quarter: 2004Q4

REPORT INFORMATION
  Report Type: 
  Country: None (occurrence: None)
  Receive Date: 20041230
  Receipt Date: 20041220
  Transmission Date: 20050328
  Serious: Yes (Death)
  Sender: FDA-Public Use
  Company Number: JP-JNJFOC-20040908768

PATIENT
  Sex: Female

DRUGS (6)
  1. DUROTEP [Suspect]
     Indication: CANCER PAIN
     Route: 062
     Dates: start: 20030904, end: 20030911
  2. BETAMETHASONE SODIUM PHOSPHATE [Concomitant]
     Indication: CANCER PAIN
     Dates: start: 20030827, end: 20030909
  3. FLURBIPROFEN AXETIL [Concomitant]
     Indication: CANCER PAIN
     Dates: start: 20030907, end: 20030911
  4. LIDOCAINE [Concomitant]
     Indication: CANCER PAIN
     Dates: start: 20030908, end: 20030910
  5. CLOMIPRAMINE HCL [Concomitant]
     Indication: DEPRESSION
     Dates: start: 20030909, end: 20030909
  6. MORPHINE HYDROCHLORIDE [Concomitant]
     Indication: CANCER PAIN
     Dates: start: 20030910, end: 20030911

REACTIONS (1)
  - LUNG NEOPLASM MALIGNANT [None]
